FAERS Safety Report 7957730-4 (Version None)
Quarter: 2011Q4

REPORT INFORMATION
  Report Type: 
  Country: None (occurrence: None)
  Receive Date: 20111205
  Receipt Date: 20111205
  Transmission Date: 20120403
  Serious: Yes (Death)
  Sender: FDA-Public Use
  Company Number: PHHO2010CN07086

PATIENT
  Sex: Male
  Weight: 51 kg

DRUGS (1)
  1. AFINITOR [Suspect]
     Indication: METASTATIC GASTRIC CANCER
     Dosage: 10 MG, BID
     Route: 048
     Dates: start: 20100319, end: 20100404

REACTIONS (3)
  - NEOPLASM MALIGNANT [None]
  - DRUG INEFFECTIVE [None]
  - CIRCULATORY COLLAPSE [None]
